FAERS Safety Report 7086860-7 (Version None)
Quarter: 2010Q4

REPORT INFORMATION
  Report Type: 
  Country: None (occurrence: None)
  Receive Date: 20101105
  Receipt Date: 20100924
  Transmission Date: 20110411
  Serious: Yes (Hospitalization)
  Sender: FDA-Public Use
  Company Number: GB-AMGEN-QUU438878

PATIENT

DRUGS (2)
  1. NPLATE [Suspect]
     Indication: IDIOPATHIC THROMBOCYTOPENIC PURPURA
     Dosage: UNK UNK, QWK
     Route: 058
     Dates: start: 20100719, end: 20100903
  2. NITROFURANTOIN [Concomitant]
     Indication: URINARY TRACT INFECTION
     Dosage: UNK UNK, UNK
     Route: 048
     Dates: start: 20100831, end: 20100902

REACTIONS (4)
  - HIP ARTHROPLASTY [None]
  - PLATELET COUNT DECREASED [None]
  - POST PROCEDURAL HAEMORRHAGE [None]
  - THERAPEUTIC RESPONSE DECREASED [None]
